FAERS Safety Report 24528755 (Version 1)
Quarter: 2024Q4

REPORT INFORMATION
  Report Type: Spontaneous
  Country: US (occurrence: None)
  Receive Date: 20241018
  Receipt Date: 20241018
  Transmission Date: 20250115
  Serious: Yes (Other)
  Sender: Public
  Company Number: None

PATIENT
  Age: 53 Year
  Sex: Female

DRUGS (1)
  1. SKYRIZI [Suspect]
     Active Substance: RISANKIZUMAB-RZAA
     Indication: Psoriatic arthropathy
     Dosage: OTHER FREQUENCY : WK4ANDEVERY12WEEKSTHEREAFTER ;?

REACTIONS (4)
  - Hypoaesthesia [None]
  - Urinary tract infection [None]
  - Diarrhoea [None]
  - Arthritis [None]
